FAERS Safety Report 5614866-0 (Version None)
Quarter: 2008Q1

REPORT INFORMATION
  Report Type: 
  Country: None (occurrence: None)
  Receive Date: 20080131
  Receipt Date: 20080125
  Transmission Date: 20080703
  Serious: Yes (Hospitalization)
  Sender: FDA-Public Use
  Company Number: 2008-00466

PATIENT
  Sex: Female

DRUGS (3)
  1. AFEDITAB CR [Suspect]
     Indication: TOCOLYSIS
     Dosage: 40 MG Q6H ORAL
     Route: 048
     Dates: start: 20060101, end: 20060101
  2. BETAMETHASONE [Concomitant]
  3. ANTIBIOTICS [Concomitant]

REACTIONS (2)
  - DRUG EXPOSURE DURING PREGNANCY [None]
  - PULMONARY CONGESTION [None]
